FAERS Safety Report 7528564-X (Version None)
Quarter: 2011Q2

REPORT INFORMATION
  Report Type: 
  Country: None (occurrence: None)
  Receive Date: 20110607
  Receipt Date: 20040518
  Transmission Date: 20111010
  Serious: Yes (Death)
  Sender: FDA-Public Use
  Company Number: PHHO2004NZ07239

PATIENT
  Sex: Male

DRUGS (4)
  1. CLOZARIL [Suspect]
     Indication: SCHIZOPHRENIA
     Dosage: 50 MG, BID
     Route: 048
     Dates: start: 20040324
  2. CLONAZEPAM [Concomitant]
     Dosage: 0.25 MG, UNK
  3. QUETIAPINE [Concomitant]
     Dosage: 100 MG, BID
  4. SINEMET [Concomitant]

REACTIONS (1)
  - DEATH [None]
